FAERS Safety Report 8552736-9 (Version None)
Quarter: 2012Q3

REPORT INFORMATION
  Report Type: 
  Country: None (occurrence: None)
  Receive Date: 20120731
  Receipt Date: 20120724
  Transmission Date: 20120928
  Serious: Yes (Other)
  Sender: FDA-Public Use
  Company Number: PHHY2012CA064800

PATIENT
  Age: 77 Year
  Sex: Female

DRUGS (5)
  1. ASPIRIN [Concomitant]
     Dosage: UNK UKN, UNK
  2. IMATINIB MESYLATE [Suspect]
     Dosage: 400 MG, 1 EVERY 1 DAY
     Route: 048
  3. VITAMIN D [Concomitant]
  4. CALCIUM [Concomitant]
  5. DILTIAZEM [Concomitant]

REACTIONS (4)
  - INSOMNIA [None]
  - PSYCHOMOTOR HYPERACTIVITY [None]
  - AMNESIA [None]
  - EYELID IRRITATION [None]
